FAERS Safety Report 7405733-0 (Version None)
Quarter: 2011Q2

REPORT INFORMATION
  Report Type: 
  Country: None (occurrence: None)
  Receive Date: 20110411
  Receipt Date: 20110406
  Transmission Date: 20111010
  Serious: Yes (Death)
  Sender: FDA-Public Use
  Company Number: US-GENZYME-FLUD-1001023

PATIENT

DRUGS (8)
  1. GRANULOCYTE COLONY STIMULATING FACTOR [Suspect]
     Indication: BONE MARROW CONDITIONING REGIMEN
     Dosage: 5 MCG/KG, QD STARTING DAY +7
     Route: 065
  2. FLUDARA [Suspect]
     Indication: HAEMATOLOGICAL MALIGNANCY
     Dosage: 30 MG/M2, QD DAYS -7 THROUGH -3
     Route: 042
  3. TACROLIMUS [Concomitant]
     Indication: PROPHYLAXIS AGAINST GRAFT VERSUS HOST DISEASE
     Dosage: STARTING DAY -1
  4. METHOTREXATE [Concomitant]
     Indication: PROPHYLAXIS AGAINST GRAFT VERSUS HOST DISEASE
     Dosage: 5 MG/M2, UNK
     Route: 042
  5. BUSULFAN [Suspect]
     Indication: HAEMATOLOGICAL MALIGNANCY
     Dosage: 0.8 MG/KG, Q 6 HOURS DAYS -4 AND -3
     Route: 042
  6. FLUDARA [Suspect]
     Indication: BONE MARROW CONDITIONING REGIMEN
  7. GRANULOCYTE COLONY STIMULATING FACTOR [Suspect]
     Indication: HAEMATOLOGICAL MALIGNANCY
     Dosage: DAY 0
     Route: 065
  8. BUSULFAN [Suspect]
     Indication: BONE MARROW CONDITIONING REGIMEN

REACTIONS (1)
  - GRAFT VERSUS HOST DISEASE [None]
